FAERS Safety Report 22303781 (Version 4)
Quarter: 2025Q2

REPORT INFORMATION
  Report Type: Spontaneous
  Country: US (occurrence: None)
  Receive Date: 20230510
  Receipt Date: 20250410
  Transmission Date: 20250717
  Serious: Yes (Hospitalization)
  Sender: INCYTE
  Company Number: US-INCYTE CORPORATION-2023IN004601

PATIENT
  Age: 81 Year
  Weight: 97.959 kg

DRUGS (5)
  1. JAKAFI [Suspect]
     Active Substance: RUXOLITINIB
     Indication: Polycythaemia vera
     Dosage: 15 MILLIGRAM, QD
  2. JAKAFI [Suspect]
     Active Substance: RUXOLITINIB
     Dosage: 15 MILLIGRAM, QD
  3. JAKAFI [Suspect]
     Active Substance: RUXOLITINIB
  4. JAKAFI [Suspect]
     Active Substance: RUXOLITINIB
     Dosage: 15 MILLIGRAM, QD
  5. FUROSEMIDE [Suspect]
     Active Substance: FUROSEMIDE
     Indication: Joint swelling
     Dosage: UNK (LOW DOSE), BID
     Route: 065

REACTIONS (7)
  - COVID-19 [Unknown]
  - Pain in extremity [Unknown]
  - Joint swelling [Unknown]
  - Heart rate decreased [Unknown]
  - Product dose omission issue [Unknown]
  - Platelet count decreased [Unknown]
  - Petechiae [Unknown]
